FAERS Safety Report 25610927 (Version 1)
Quarter: 2025Q3

REPORT INFORMATION
  Report Type: Spontaneous
  Country: US (occurrence: None)
  Receive Date: 20250725
  Receipt Date: 20250725
  Transmission Date: 20251021
  Serious: Yes (Life-Threatening, Hospitalization)
  Sender: FDA-CTU
  Company Number: None

PATIENT
  Age: 73 Year
  Sex: Male
  Weight: 86.5 kg

DRUGS (11)
  1. LACOSAMIDE [Suspect]
     Active Substance: LACOSAMIDE
     Indication: Status epilepticus
     Route: 040
  2. ACETAMINOPHEN [Concomitant]
     Active Substance: ACETAMINOPHEN
  3. ACYCLOVIR [Concomitant]
     Active Substance: ACYCLOVIR
  4. MUPIROCIN [Concomitant]
     Active Substance: MUPIROCIN
  5. PROPOFOL [Suspect]
     Active Substance: PROPOFOL
  6. FOLIC ACID [Concomitant]
     Active Substance: FOLIC ACID
  7. Magensium Sulfate [Concomitant]
  8. Potassium + Sodium Phosphate [Concomitant]
  9. MIRALAX [Concomitant]
     Active Substance: POLYETHYLENE GLYCOL 3350
  10. FENTANYL [Concomitant]
     Active Substance: FENTANYL
  11. LEVETIRACETAM [Suspect]
     Active Substance: LEVETIRACETAM

REACTIONS (6)
  - Cardiac arrest [None]
  - Seizure [None]
  - Heart rate decreased [None]
  - Hypotension [None]
  - Cardiac arrest [None]
  - Atrioventricular block [None]

NARRATIVE: CASE EVENT DATE: 20250429
